FAERS Safety Report 7128004-9 (Version None)
Quarter: 2010Q4

REPORT INFORMATION
  Report Type: 
  Country: None (occurrence: None)
  Receive Date: 20101130
  Receipt Date: 20101116
  Transmission Date: 20110411
  Serious: Yes (Hospitalization)
  Sender: FDA-Public Use
  Company Number: PHHY2010AU74921

PATIENT
  Sex: Male

DRUGS (2)
  1. AFINITOR [Suspect]
     Indication: RENAL CELL CARCINOMA
     Dosage: 10 MG DAILY
     Route: 048
     Dates: start: 20100729, end: 20101021
  2. AFINITOR [Suspect]
     Dosage: 5 MG, DAILY

REACTIONS (4)
  - ANAEMIA [None]
  - DIZZINESS [None]
  - DRUG TOXICITY [None]
  - PAIN [None]
